FAERS Safety Report 21253250 (Version 2)
Quarter: 2022Q4

REPORT INFORMATION
  Report Type: Spontaneous
  Country: US (occurrence: US)
  Receive Date: 20220825
  Receipt Date: 20221021
  Transmission Date: 20230113
  Serious: No
  Sender: FDA-Public Use
  Company Number: US-NOVARTISTESTPH-NVSC2022US189321

PATIENT

DRUGS (2)
  1. COSENTYX [Suspect]
     Active Substance: SECUKINUMAB
     Indication: Psoriasis
     Dosage: 150 MG, QW
     Route: 058
     Dates: start: 202207, end: 202208
  2. COSENTYX [Suspect]
     Active Substance: SECUKINUMAB
     Indication: Arthralgia

REACTIONS (3)
  - Incorrect dose administered [Recovering/Resolving]
  - Product use in unapproved indication [Unknown]
  - Drug ineffective for unapproved indication [Recovering/Resolving]

NARRATIVE: CASE EVENT DATE: 20220701
